FAERS Safety Report 4309479-7 (Version None)
Quarter: 2004Q1

REPORT INFORMATION
  Report Type: 
  Country: None (occurrence: None)
  Receive Date: 20040227
  Receipt Date: 20040217
  Transmission Date: 20041129
  Serious: Yes (Hospitalization)
  Sender: FDA-Public Use
  Company Number: FR-BRISTOL-MYERS SQUIBB COMPANY-12517108

PATIENT
  Age: 44 Year
  Sex: Male

DRUGS (3)
  1. ENDOXAN [Suspect]
     Indication: WEGENER'S GRANULOMATOSIS
     Dosage: THERAPY DATES 29-SEP-2003 TO 01-DEC-2003
     Route: 042
     Dates: start: 20030929, end: 20030929
  2. SOLU-MEDROL [Suspect]
     Indication: WEGENER'S GRANULOMATOSIS
     Dosage: THERAPY DATES: 26-SEP-2003 TO 30-SEP-2003
     Route: 042
     Dates: start: 20030930, end: 20030930
  3. SOLUPRED [Suspect]
     Indication: WEGENER'S GRANULOMATOSIS
     Route: 048
     Dates: start: 20031001, end: 20031001

REACTIONS (4)
  - CAROTID ARTERY ATHEROMA [None]
  - CAROTID ARTERY STENOSIS [None]
  - CAROTID ARTERY THROMBOSIS [None]
  - CEREBRAL INFARCTION [None]
